FAERS Safety Report 9562599 (Version 3)
Quarter: 2014Q1

REPORT INFORMATION
  Report Type: Report from Study
  Country: JP (occurrence: JP)
  Receive Date: 20130927
  Receipt Date: 20140327
  Transmission Date: 20141002
  Serious: Yes (Hospitalization)
  Sender: FDA-Public Use
  Company Number: JP-009507513-1305JPN003951

PATIENT
  Age: 46 Year
  Sex: Male
  Weight: 81 kg

DRUGS (17)
  1. TEMOZOLOMIDE [Suspect]
     Indication: ANAPLASTIC ASTROCYTOMA
     Dosage: 100 MG/SQM, QD, 1 CYCLE
     Route: 048
     Dates: start: 20061106, end: 20061217
  2. TEMOZOLOMIDE [Suspect]
     Dosage: 150 MG/SQM, QD, 2 CYCLE TO THE 3 CYCLE
     Route: 048
     Dates: start: 20070123, end: 20070225
  3. TEMOZOLOMIDE [Suspect]
     Dosage: 150 MG/SQM, QD, 4 CYCLE
     Route: 048
     Dates: start: 20070321, end: 20070325
  4. TEMOZOLOMIDE [Suspect]
     Dosage: 150 MG/SQM, QD, 5 CYCLE TO THE 33 CYCLE
     Route: 048
     Dates: start: 20070419, end: 20090908
  5. TEMOZOLOMIDE [Suspect]
     Dosage: 200 MG/SQM, QD, 34 CYCLE TO THE 57 CYCLE
     Route: 048
     Dates: start: 20091009, end: 20110913
  6. TEMOZOLOMIDE [Suspect]
     Dosage: 150 MG/SQM, QD, 58 CYCLE TO THE 64 CYCLE
     Route: 048
     Dates: start: 20120419, end: 20121009
  7. TEMOZOLOMIDE [Suspect]
     Dosage: 200 MG/SQM, QD, 65 CYCLE TO THE 74 CYCLE
     Route: 048
     Dates: start: 20121102, end: 20130723
  8. NASEA [Suspect]
     Indication: PROPHYLAXIS
     Dosage: DAILY DOSE UNKNOWN;BEGINING OF DOSAGE ORTHOSTATIC DYSFUNCTION BEFORE 06-NOV-2006
     Route: 048
     Dates: start: 2006, end: 20130724
  9. NASEA [Suspect]
     Indication: ANAPLASTIC ASTROCYTOMA
  10. QUETIAPINE FUMARATE [Suspect]
     Indication: ANAPLASTIC ASTROCYTOMA
     Dosage: 12.5 MG, DIVIDED DOSE FREQUENCY UNKNOWN, FORMULATION: POR
     Route: 048
     Dates: end: 20130918
  11. KEPPRA [Suspect]
     Indication: ANAPLASTIC ASTROCYTOMA
     Dosage: DAILY DOSAGE UNKNOWN
     Route: 048
     Dates: end: 20130918
  12. SERENASE [Concomitant]
     Indication: PROPHYLAXIS
     Dosage: DAILY DOSE UNKNOWN;BEGINING OF DOSAGE: BEFORE 06-NOV-2006; FORMULATION:POR
     Route: 048
     Dates: start: 2006, end: 20070312
  13. EXCEGRAN [Concomitant]
     Indication: PROPHYLAXIS
     Dosage: DAILY DOSE UNKNOWN;BEGINING OF DOSAGE: BEFORE 06-NOV-2006; FORMULATION:POR
     Route: 048
     Dates: start: 2006, end: 20070624
  14. MUCOSTA [Concomitant]
     Indication: PROPHYLAXIS
     Dosage: DAILY DOSE UNKNOWN; BEGINING OF DOSAGE: BEFORE 06-NOV-2006; FORMULATION:POR
     Route: 048
     Dates: start: 2006, end: 20070429
  15. TAKEPRON [Concomitant]
     Indication: PROPHYLAXIS
     Dosage: DAILY DOSE UNKNOWN; FORMULATION: POR
     Route: 048
     Dates: start: 20080829
  16. TEGRETOL [Concomitant]
     Indication: PROPHYLAXIS
     Dosage: DAILY DOSE UNKNOWN, FORMULATION: POR
     Route: 048
     Dates: start: 20080829
  17. DEPAKENE [Concomitant]
     Indication: PROPHYLAXIS
     Dosage: DAILY DOSAGE UNKNOWN
     Route: 048
     Dates: start: 20080829

REACTIONS (4)
  - Intracranial tumour haemorrhage [Recovered/Resolved with Sequelae]
  - Glucose tolerance impaired [Recovered/Resolved]
  - Glucose urine present [Recovered/Resolved]
  - Lymphocyte count decreased [Recovered/Resolved]
